FAERS Safety Report 9931448 (Version 1)
Quarter: 2014Q1

REPORT INFORMATION
  Report Type: Spontaneous
  Country: US (occurrence: US)
  Receive Date: 20140228
  Receipt Date: 20140228
  Transmission Date: 20141002
  Serious: Yes (Death, Hospitalization)
  Sender: FDA-Public Use
  Company Number: US-SUN PHARMACEUTICAL INDUSTRIES LTD-2014SUN00412

PATIENT
  Sex: 0

DRUGS (16)
  1. BACTRIM DS TABLETS, USP 800 MG/ 160 MG [Suspect]
     Indication: PRODUCT USED FOR UNKNOWN INDICATION
     Dosage: UNK
     Route: 065
     Dates: start: 20140113
  2. ARRY-520 [Suspect]
     Indication: PLASMA CELL MYELOMA
     Dosage: 3.0 MG/M2 DAYS 1 AND 15
     Route: 042
     Dates: start: 20140113, end: 20140113
  3. BORTEZOMIB [Suspect]
     Indication: PLASMA CELL MYELOMA
     Dosage: 1.3 MG/M2 DAYS 1, 8, AND 15
     Route: 042
     Dates: start: 20140113
  4. DEXAMETHASONE [Suspect]
     Indication: PLASMA CELL MYELOMA
     Dosage: 0.571 MG, OD
     Route: 048
     Dates: start: 20140110
  5. GRANULOCYTE COLONY-STIMULATING FACTOR NOS [Suspect]
     Indication: PLASMA CELL MYELOMA
     Dosage: UNK
     Route: 058
     Dates: start: 20140114
  6. REVLIMID [Concomitant]
     Dosage: UNK
     Dates: start: 20110412
  7. ASPIRIN [Concomitant]
  8. BUPROPION HCL [Concomitant]
  9. GLIPIZIDE [Concomitant]
  10. LISINOPRIL [Concomitant]
  11. METOCLOPRAMIDE [Concomitant]
  12. NITROFURANTOIN [Concomitant]
  13. PROCARDIA XL [Concomitant]
  14. SODIUM BICARBONATE [Concomitant]
  15. ACICLOVIR [Concomitant]
  16. TRADJENTA [Concomitant]

REACTIONS (3)
  - Septic shock [Fatal]
  - Stevens-Johnson syndrome [Fatal]
  - Stomatitis [Not Recovered/Not Resolved]
